FAERS Safety Report 10157315 (Version 1)
Quarter: 2014Q2

REPORT INFORMATION
  Report Type: Report from Study
  Country: US (occurrence: US)
  Receive Date: 20140507
  Receipt Date: 20140507
  Transmission Date: 20141212
  Serious: Yes (Other)
  Sender: FDA-Public Use
  Company Number: US-ROCHE-1390565

PATIENT
  Sex: Male

DRUGS (5)
  1. ZELBORAF [Suspect]
     Indication: MALIGNANT MELANOMA
     Dosage: 3 TABLETS TWICE PER DAY
     Route: 048
     Dates: start: 20140401
  2. VITAMIN B12 [Concomitant]
     Route: 048
  3. SIMVASTATIN [Concomitant]
     Indication: BLOOD CHOLESTEROL
     Route: 048
  4. FLOMAX (UNITED STATES) [Concomitant]
     Indication: BENIGN PROSTATIC HYPERPLASIA
     Route: 048
  5. LORAZEPAM [Concomitant]
     Indication: ANXIETY
     Route: 048
     Dates: start: 20120715

REACTIONS (3)
  - Metastatic neoplasm [Not Recovered/Not Resolved]
  - Thrombosis [Not Recovered/Not Resolved]
  - Bone loss [Not Recovered/Not Resolved]
